FAERS Safety Report 7994224-4 (Version None)
Quarter: 2011Q4

REPORT INFORMATION
  Report Type: 
  Country: None (occurrence: None)
  Receive Date: 20111220
  Receipt Date: 20111208
  Transmission Date: 20120403
  Serious: Yes (Hospitalization)
  Sender: FDA-Public Use
  Company Number: US-JNJFOC-20110607700

PATIENT
  Sex: Female
  Weight: 86.18 kg

DRUGS (13)
  1. ACETAMINOPHEN [Concomitant]
     Indication: PREMEDICATION
     Route: 048
     Dates: end: 20110520
  2. REMICADE [Suspect]
     Route: 042
     Dates: start: 20110329
  3. REMICADE [Suspect]
     Route: 042
     Dates: start: 20110104
  4. REMICADE [Suspect]
     Route: 042
     Dates: start: 20110329
  5. REMICADE [Suspect]
     Route: 042
     Dates: start: 20110215
  6. REMICADE [Suspect]
     Route: 042
     Dates: start: 20100824
  7. METHOTREXATE [Concomitant]
     Indication: RHEUMATOID ARTHRITIS
     Dates: start: 20071201
  8. ENBREL [Suspect]
     Indication: RHEUMATOID ARTHRITIS
     Route: 058
     Dates: start: 20090101, end: 20100601
  9. REMICADE [Suspect]
     Indication: RHEUMATOID ARTHRITIS
     Route: 042
     Dates: start: 20110510
  10. PREDNISONE [Concomitant]
     Indication: RHEUMATOID ARTHRITIS
     Dates: start: 20071201
  11. REMICADE [Suspect]
     Route: 042
     Dates: start: 20101123
  12. BENADRYL [Concomitant]
     Indication: PREMEDICATION
     Route: 048
     Dates: start: 20110510
  13. AN UNKNOWN MEDICATION [Concomitant]
     Indication: RHEUMATOID ARTHRITIS
     Dates: start: 20071201

REACTIONS (7)
  - BRONCHITIS CHRONIC [None]
  - DECREASED APPETITE [None]
  - PULMONARY MASS [None]
  - MALAISE [None]
  - FEELING ABNORMAL [None]
  - RESPIRATORY TRACT INFECTION FUNGAL [None]
  - HEADACHE [None]
